FAERS Safety Report 6285315-7 (Version None)
Quarter: 2009Q3

REPORT INFORMATION
  Report Type: 
  Country: None (occurrence: None)
  Receive Date: 20090727
  Receipt Date: 20090716
  Transmission Date: 20100115
  Serious: Yes (Hospitalization)
  Sender: FDA-Public Use
  Company Number: US-ELI_LILLY_AND_COMPANY-US200907005481

PATIENT
  Sex: Female
  Weight: 85.261 kg

DRUGS (11)
  1. BYETTA [Suspect]
     Indication: TYPE 2 DIABETES MELLITUS
     Dosage: 5 UG, 2/D
     Route: 058
     Dates: start: 20070101, end: 20070101
  2. BYETTA [Suspect]
     Dosage: 5 UG, 3/D
     Route: 058
     Dates: start: 20070101, end: 20070101
  3. BYETTA [Suspect]
     Dosage: 10 UG, 2/D
     Route: 058
     Dates: start: 20070101, end: 20070101
  4. BYETTA [Suspect]
     Dosage: 5 UG, 2/D
     Route: 058
     Dates: start: 20090701
  5. PROSCAR [Concomitant]
     Indication: ALOPECIA
     Dosage: 5 MG, DAILY (1/D)
     Route: 048
  6. BENICAR [Concomitant]
  7. MULTI-VITAMIN [Concomitant]
     Dosage: UNK, DAILY (1/D)
     Route: 048
  8. OSCAL /00108001/ [Concomitant]
     Dosage: UNK, DAILY (1/D)
     Route: 048
  9. GLIMEPIRIDE [Concomitant]
  10. LEVEMIR [Concomitant]
     Dosage: UNK, EACH EVENING
     Route: 058
  11. REGULAR INSULIN [Concomitant]

REACTIONS (29)
  - ARTHRALGIA [None]
  - BLADDER PROLAPSE [None]
  - BLOOD GLUCOSE INCREASED [None]
  - BLOOD URINE PRESENT [None]
  - DECREASED APPETITE [None]
  - DISORIENTATION [None]
  - DIZZINESS [None]
  - DYSPEPSIA [None]
  - ERUCTATION [None]
  - FALL [None]
  - INCONTINENCE [None]
  - JOINT INJURY [None]
  - JOINT SWELLING [None]
  - MOBILITY DECREASED [None]
  - MUSCLE SPASMS [None]
  - MYALGIA [None]
  - NAUSEA [None]
  - NEUROPATHY PERIPHERAL [None]
  - OFF LABEL USE [None]
  - PAIN [None]
  - PAIN IN EXTREMITY [None]
  - PALLOR [None]
  - PYREXIA [None]
  - TENDONITIS [None]
  - TREMOR [None]
  - URINARY TRACT INFECTION [None]
  - UTERINE PROLAPSE [None]
  - VOMITING [None]
  - WEIGHT FLUCTUATION [None]
